FAERS Safety Report 5314005-X (Version None)
Quarter: 2007Q2

REPORT INFORMATION
  Report Type: 
  Country: None (occurrence: None)
  Receive Date: 20070501
  Receipt Date: 20070420
  Transmission Date: 20071010
  Serious: Yes (Hospitalization)
  Sender: FDA-Public Use
  Company Number: US-ELI_LILLY_AND_COMPANY-US200704004656

PATIENT
  Sex: Female

DRUGS (2)
  1. HUMALOG [Suspect]
     Route: 058
     Dates: start: 20050101
  2. HUMALOG [Suspect]
     Route: 058
     Dates: start: 19970101, end: 20050101

REACTIONS (4)
  - FEMALE GENITAL TRACT FISTULA [None]
  - MUSCLE SPASMS [None]
  - SCAR [None]
  - VAGINAL HAEMORRHAGE [None]
